FAERS Safety Report 8049437-2 (Version None)
Quarter: 2012Q1

REPORT INFORMATION
  Report Type: 
  Country: None (occurrence: None)
  Receive Date: 20120117
  Receipt Date: 20120112
  Transmission Date: 20120608
  Serious: Yes (Hospitalization)
  Sender: FDA-Public Use
  Company Number: US-AMGEN-USASP2012000858

PATIENT
  Age: 86 Year
  Sex: Female

DRUGS (6)
  1. SPIRONOLACTONE [Concomitant]
  2. PROLIA [Suspect]
     Indication: OSTEOPOROSIS POSTMENOPAUSAL
     Dosage: UNK UNK, Q6MO
     Dates: start: 20111213
  3. ISOSORBIDE DINITRATE [Concomitant]
  4. SIMVASTATIN [Concomitant]
  5. VITAMIN B-12 [Concomitant]
  6. RISPERDAL [Concomitant]

REACTIONS (1)
  - CELLULITIS [None]
